FAERS Safety Report 4822488-4 (Version None)
Quarter: 2005Q4

REPORT INFORMATION
  Report Type: 
  Country: None (occurrence: None)
  Receive Date: 20051104
  Receipt Date: 20051026
  Transmission Date: 20060501
  Serious: Yes (Hospitalization)
  Sender: FDA-Public Use
  Company Number: A001-320-767

PATIENT
  Age: 82 Year
  Sex: Female
  Weight: 55.7 kg

DRUGS (9)
  1. DONEPEZIL HCL [Suspect]
     Indication: VASCULAR DEMENTIA
     Dosage: 5 MG, 1 IN 1 D, ORAL; 10 MG, 1 IN 1 D, ORAL
     Route: 048
  2. DONEPEZIL HCL [Suspect]
     Indication: VASCULAR DEMENTIA
     Dosage: DOUBLEBLIND, 1 IN 1 D, ORAL
     Route: 048
  3. PANADEINE (PANADEINE CO) [Concomitant]
  4. DIGOXIN [Concomitant]
  5. METOPROLOL TARTRATE [Concomitant]
  6. WARFARIN SODIUM [Concomitant]
  7. PHYTONADIONE [Concomitant]
  8. SLOW-K [Concomitant]
  9. AMIODARONE HCL [Concomitant]

REACTIONS (4)
  - ANAESTHETIC COMPLICATION CARDIAC [None]
  - APPENDICEAL ABSCESS [None]
  - APPENDICITIS PERFORATED [None]
  - VENTRICULAR TACHYCARDIA [None]
